FAERS Safety Report 9871286 (Version 2)
Quarter: 2014Q1

REPORT INFORMATION
  Report Type: Report from Study
  Country: US (occurrence: US)
  Receive Date: 20140205
  Receipt Date: 20140226
  Transmission Date: 20141002
  Serious: Yes (Other)
  Sender: FDA-Public Use
  Company Number: US-US-EMD SERONO, INC.-7266151

PATIENT
  Age: 51 Year
  Sex: Male

DRUGS (12)
  1. EGRIFTA [Suspect]
     Indication: LIPODYSTROPHY ACQUIRED
     Route: 058
     Dates: start: 20120901
  2. ALLEGRA                            /01314201/ [Concomitant]
     Indication: PRODUCT USED FOR UNKNOWN INDICATION
     Route: 048
  3. BABY ASPIRIN [Concomitant]
     Indication: PRODUCT USED FOR UNKNOWN INDICATION
     Route: 048
  4. CRESTOR                            /01588601/ [Concomitant]
     Indication: PRODUCT USED FOR UNKNOWN INDICATION
     Route: 048
     Dates: start: 20130306
  5. CIALIS [Concomitant]
     Indication: ERECTILE DYSFUNCTION
     Route: 048
  6. MARINOL [Concomitant]
     Indication: PRODUCT USED FOR UNKNOWN INDICATION
     Route: 048
     Dates: start: 20130904
  7. NIASPAN [Concomitant]
     Indication: PRODUCT USED FOR UNKNOWN INDICATION
     Route: 048
     Dates: start: 20130425
  8. NORVIR [Concomitant]
     Indication: HIV INFECTION
     Route: 048
     Dates: start: 20131231
  9. SORIATANE [Concomitant]
     Indication: PRODUCT USED FOR UNKNOWN INDICATION
     Route: 048
  10. TESTOSTERONE ENANTHATE [Concomitant]
     Indication: HYPOGONADISM
     Dosage: 200 MG PER ML
     Route: 030
     Dates: start: 20130131
  11. TRUVADA                            /01398801/ [Concomitant]
     Indication: HIV INFECTION
     Route: 048
     Dates: start: 20130425
  12. VALTREX [Concomitant]
     Indication: HERPES SIMPLEX
     Route: 048
     Dates: start: 20130425

REACTIONS (4)
  - Squamous cell carcinoma [Recovered/Resolved]
  - Anogenital dysplasia [Unknown]
  - Essential hypertension [Unknown]
  - Melanocytic naevus [Unknown]
